FAERS Safety Report 4630841-7 (Version None)
Quarter: 2005Q1

REPORT INFORMATION
  Report Type: 
  Country: None (occurrence: None)
  Receive Date: 20050331
  Receipt Date: 20050331
  Transmission Date: 20050727
  Serious: No
  Sender: FDA-Public Use
  Company Number: None

PATIENT
  Age: 20 Year
  Sex: Female

DRUGS (1)
  1. MANTONX [Suspect]
     Dosage: INTRADERMAL
     Route: 023
     Dates: start: 20050314, end: 20050316

REACTIONS (1)
  - URTICARIA GENERALISED [None]
